FAERS Safety Report 4778988-9 (Version None)
Quarter: 2005Q3

REPORT INFORMATION
  Report Type: 
  Country: None (occurrence: None)
  Receive Date: 20050914
  Receipt Date: 20050519
  Transmission Date: 20060218
  Serious: Yes (Other)
  Sender: FDA-Public Use
  Company Number: 405371

PATIENT
  Age: 70 Year
  Sex: Female

DRUGS (2)
  1. BONIVA [Suspect]
     Indication: BONE DENSITY DECREASED
     Dosage: ORAL
     Route: 048
     Dates: start: 20050517
  2. DILANTIN [Suspect]
     Indication: CONVULSION
     Dosage: ORAL
     Route: 048
     Dates: start: 20041215

REACTIONS (2)
  - ASTHENIA [None]
  - FATIGUE [None]
